FAERS Safety Report 8478449-X (Version None)
Quarter: 2012Q2

REPORT INFORMATION
  Report Type: 
  Country: None (occurrence: None)
  Receive Date: 20120629
  Receipt Date: 20111219
  Transmission Date: 20120825
  Serious: No
  Sender: FDA-Public Use
  Company Number: US-ABBOTT-11P-163-0884533-00

PATIENT
  Sex: Female
  Weight: 70.37 kg

DRUGS (4)
  1. NORVIR CAPSULES [Suspect]
     Indication: HIV INFECTION
     Dates: start: 20030101
  2. TRUVADA [Concomitant]
     Indication: HIV INFECTION
  3. REYATAZ [Concomitant]
     Indication: HIV INFECTION
  4. MULTI-VITAMINS [Concomitant]
     Indication: PRODUCT USED FOR UNKNOWN INDICATION

REACTIONS (3)
  - ABDOMINAL DISTENSION [None]
  - COELIAC DISEASE [None]
  - PAIN [None]
